FAERS Safety Report 12838586 (Version 1)
Quarter: 2016Q4

REPORT INFORMATION
  Report Type: Report from Study
  Country: BR (occurrence: BR)
  Receive Date: 20161012
  Receipt Date: 20161012
  Transmission Date: 20170207
  Serious: Yes (Hospitalization)
  Sender: FDA-Public Use
  Company Number: PHHY2015BR089090

PATIENT
  Age: 22 Year
  Sex: Male
  Weight: 54 kg

DRUGS (5)
  1. EXJADE [Suspect]
     Active Substance: DEFERASIROX
     Dosage: 250 MG, QD (ONCE DAILY)
     Route: 048
  2. EXJADE [Suspect]
     Active Substance: DEFERASIROX
     Dosage: 125 MG, QD (ONCE DAILY)
     Route: 048
  3. EXJADE [Suspect]
     Active Substance: DEFERASIROX
     Indication: THALASSAEMIA
     Dosage: 1750 MG, QD
     Route: 048
     Dates: start: 2009
  4. EXJADE [Suspect]
     Active Substance: DEFERASIROX
     Dosage: 1500 MG, QD (DAILY)
     Route: 048
  5. EXJADE [Suspect]
     Active Substance: DEFERASIROX
     Dosage: 35 MG/KG, QD (1875 MG, 3 DF OF 500 MG, 1 DF OF 250 MG AND 1 DF OF 125 MG)
     Route: 048

REACTIONS (10)
  - Nephrolithiasis [Unknown]
  - Calculus bladder [Unknown]
  - Serum ferritin increased [Unknown]
  - Cholelithiasis [Recovered/Resolved]
  - Kidney enlargement [Unknown]
  - Stenosis [Unknown]
  - Pelvi-ureteric obstruction [Unknown]
  - Bladder disorder [Unknown]
  - Weight decreased [Unknown]
  - Meningitis [Unknown]

NARRATIVE: CASE EVENT DATE: 20160217
